FAERS Safety Report 17192348 (Version 1)
Quarter: 2019Q4

REPORT INFORMATION
  Report Type: Report from Study
  Country: MX (occurrence: MX)
  Receive Date: 20191223
  Receipt Date: 20191223
  Transmission Date: 20200122
  Serious: Yes (Other)
  Sender: FDA-Public Use
  Company Number: PHHY2019MX191014

PATIENT
  Age: 18 Year
  Sex: Male
  Weight: 69 kg

DRUGS (5)
  1. SANDIMMUN NEORAL [Suspect]
     Active Substance: CYCLOSPORINE
     Indication: IMMUNOSUPPRESSION
     Dosage: 1 DF, QD
     Route: 048
     Dates: start: 201612, end: 20191217
  2. MYFORTIC [Suspect]
     Active Substance: MYCOPHENOLATE SODIUM
     Indication: RENAL TRANSPLANT
     Dosage: 3 DF (1 DF IN THE MORNING AND 2 DF AT NIGHT) , QD
     Route: 048
     Dates: start: 201312
  3. SANDIMMUN NEORAL [Suspect]
     Active Substance: CYCLOSPORINE
     Indication: RENAL TRANSPLANT
     Dosage: 0.08 ML, QD
     Route: 048
     Dates: start: 201906, end: 20191217
  4. SANDIMMUN NEORAL [Suspect]
     Active Substance: CYCLOSPORINE
     Indication: RENAL TRANSPLANT
  5. SANDIMMUN NEORAL [Suspect]
     Active Substance: CYCLOSPORINE
     Indication: IMMUNOSUPPRESSION

REACTIONS (4)
  - Inappropriate schedule of product administration [Unknown]
  - Toxicity to various agents [Not Recovered/Not Resolved]
  - Renal impairment [Not Recovered/Not Resolved]
  - Immunosuppressant drug level increased [Unknown]

NARRATIVE: CASE EVENT DATE: 201901
